FAERS Safety Report 7911985-0 (Version None)
Quarter: 2011Q4

REPORT INFORMATION
  Report Type: 
  Country: None (occurrence: None)
  Receive Date: 20111114
  Receipt Date: 20111109
  Transmission Date: 20120403
  Serious: Yes (Other)
  Sender: FDA-Public Use
  Company Number: DE-ROCHE-1009437

PATIENT
  Sex: Female
  Weight: 93.1 kg

DRUGS (2)
  1. MIRCERA [Suspect]
     Indication: NEPHROGENIC ANAEMIA
     Route: 042
     Dates: start: 20100701
  2. MIRCERA [Suspect]
     Route: 042

REACTIONS (2)
  - HAEMOGLOBIN DECREASED [None]
  - GASTRITIS [None]
